FAERS Safety Report 12909610 (Version 1)
Quarter: 2016Q4

REPORT INFORMATION
  Report Type: Report from Study
  Country: US (occurrence: US)
  Receive Date: 20161104
  Receipt Date: 20161104
  Transmission Date: 20170207
  Serious: Yes (Other)
  Sender: FDA-Public Use
  Company Number: US-AMGEN-USASL2016150740

PATIENT
  Age: 53 Year
  Sex: Female

DRUGS (2)
  1. ENBREL [Suspect]
     Active Substance: ETANERCEPT
     Indication: RHEUMATOID ARTHRITIS
  2. ENBREL [Suspect]
     Active Substance: ETANERCEPT
     Indication: PSORIASIS
     Dosage: UNK UNK, QWK
     Route: 065

REACTIONS (11)
  - Restless legs syndrome [Unknown]
  - Bladder prolapse [Unknown]
  - Vein disorder [Unknown]
  - Hysterectomy [Unknown]
  - Sleep disorder due to general medical condition, insomnia type [Unknown]
  - Venous operation [Unknown]
  - Hypoaesthesia [Unknown]
  - Nervousness [Unknown]
  - Stress [Unknown]
  - Psoriasis [Unknown]
  - Limb discomfort [Unknown]

NARRATIVE: CASE EVENT DATE: 20151208
